FAERS Safety Report 7037100-6 (Version None)
Quarter: 2010Q4

REPORT INFORMATION
  Report Type: 
  Country: None (occurrence: None)
  Receive Date: 20101011
  Receipt Date: 20100930
  Transmission Date: 20110411
  Serious: Yes (Other)
  Sender: FDA-Public Use
  Company Number: US-ASTRAZENECA-2010SE46238

PATIENT
  Sex: Female

DRUGS (13)
  1. NEXIUM [Suspect]
     Route: 048
  2. SEROQUEL [Interacting]
     Route: 048
  3. NEURONTIN [Interacting]
     Route: 065
  4. LITHIUM CARBONATE [Interacting]
     Route: 065
  5. EFFEXOR XR [Interacting]
     Route: 065
  6. TRAMADOL [Interacting]
     Route: 065
  7. LEVOTHROID [Interacting]
     Route: 065
  8. ABILIFY [Interacting]
     Route: 065
  9. BUSPAR [Interacting]
     Route: 065
  10. MONTELUKAST [Interacting]
     Route: 065
  11. ATROVENT [Interacting]
     Route: 065
  12. FLOVENT [Interacting]
     Route: 065
  13. FLEXERIL [Interacting]
     Route: 065

REACTIONS (2)
  - DRUG INTERACTION [None]
  - HYPOTHYROIDISM [None]
